FAERS Safety Report 4721470-5 (Version None)
Quarter: 2005Q3

REPORT INFORMATION
  Report Type: 
  Country: None (occurrence: None)
  Receive Date: 20050721
  Receipt Date: 20040927
  Transmission Date: 20060218
  Serious: No
  Sender: FDA-Public Use
  Company Number: US-BRISTOL-MYERS SQUIBB COMPANY-12714002

PATIENT
  Age: 72 Year
  Sex: Female
  Weight: 77 kg

DRUGS (6)
  1. COUMADIN [Suspect]
     Indication: ATRIAL FIBRILLATION
     Route: 048
     Dates: start: 20030901
  2. TAMBOCOR [Concomitant]
  3. MONOPRIL [Concomitant]
  4. HYDROCHLOROTHIAZIDE [Concomitant]
  5. SYNTHROID [Concomitant]
  6. CLARINEX [Concomitant]

REACTIONS (6)
  - ECZEMA [None]
  - HYPOTRICHOSIS [None]
  - LOCAL SWELLING [None]
  - PSORIASIS [None]
  - SEBORRHOEA [None]
  - SWELLING FACE [None]
